FAERS Safety Report 20446556 (Version 1)
Quarter: 2022Q1

REPORT INFORMATION
  Report Type: Spontaneous
  Country: US (occurrence: US)
  Receive Date: 20220208
  Receipt Date: 20220208
  Transmission Date: 20220423
  Serious: No
  Sender: FDA-Public Use
  Company Number: US-CELGENE-USA-20220201370

PATIENT
  Age: 36 Year
  Sex: Female
  Weight: 80 kg

DRUGS (1)
  1. BREYANZI [Suspect]
     Active Substance: LISOCABTAGENE MARALEUCEL
     Indication: Diffuse large B-cell lymphoma
     Route: 041
     Dates: start: 20211027, end: 20211027

REACTIONS (7)
  - Incontinence [Unknown]
  - Hypoalbuminaemia [Unknown]
  - Memory impairment [Unknown]
  - Fatigue [Unknown]
  - Aphasia [Unknown]
  - Confusional state [Unknown]
  - Tremor [Unknown]

NARRATIVE: CASE EVENT DATE: 20211028
